FAERS Safety Report 6171274-4 (Version None)
Quarter: 2009Q2

REPORT INFORMATION
  Report Type: 
  Country: None (occurrence: None)
  Receive Date: 20090428
  Receipt Date: 20090428
  Transmission Date: 20091009
  Serious: Yes (Hospitalization)
  Sender: FDA-Public Use
  Company Number: None

PATIENT
  Sex: Male
  Weight: 77.1115 kg

DRUGS (7)
  1. LARIAM [Suspect]
     Indication: MALARIA PROPHYLAXIS
     Dosage: 250 MG WEEKLY PO, 3-4 DOSES
     Route: 048
     Dates: start: 20090126, end: 20090226
  2. AMBIEN [Concomitant]
  3. RISPERDAL [Concomitant]
  4. KLONOPIN [Concomitant]
  5. PERIACTIN [Concomitant]
  6. WELLBUTRIN [Concomitant]
  7. CLARITIN [Concomitant]

REACTIONS (8)
  - ABNORMAL DREAMS [None]
  - DEPRESSION [None]
  - DYSPNOEA [None]
  - HYPOPHAGIA [None]
  - INSOMNIA [None]
  - PANIC ATTACK [None]
  - PSYCHOMOTOR RETARDATION [None]
  - WEIGHT DECREASED [None]
